FAERS Safety Report 24623867 (Version 2)
Quarter: 2025Q1

REPORT INFORMATION
  Report Type: Spontaneous
  Country: AU (occurrence: AU)
  Receive Date: 20241115
  Receipt Date: 20250207
  Transmission Date: 20250408
  Serious: Yes (Hospitalization, Other)
  Sender: RANBAXY
  Company Number: AU-SUN PHARMACEUTICAL INDUSTRIES LTD-2024RR-479209

PATIENT
  Age: 16 Year
  Sex: Female

DRUGS (2)
  1. SUNITINIB [Suspect]
     Active Substance: SUNITINIB
     Indication: Metastatic neoplasm
     Dosage: 50 MILLIGRAM, DAILY
     Route: 065
  2. SUNITINIB [Suspect]
     Active Substance: SUNITINIB

REACTIONS (9)
  - Renal failure [Recovered/Resolved]
  - Pleural effusion [Recovered/Resolved]
  - Therapeutic product effect incomplete [Recovered/Resolved]
  - Ascites [Recovered/Resolved]
  - Lethargy [Recovered/Resolved]
  - Hyperaesthesia [Recovered/Resolved]
  - Nausea [Recovered/Resolved]
  - Malaise [Recovered/Resolved]
  - Off label use [Unknown]
